FAERS Safety Report 7704035-2 (Version None)
Quarter: 2011Q3

REPORT INFORMATION
  Report Type: 
  Country: None (occurrence: None)
  Receive Date: 20110729
  Receipt Date: 20110415
  Transmission Date: 20111222
  Serious: Yes (Hospitalization, Other)
  Sender: FDA-Public Use
  Company Number: CERZ-1002020

PATIENT
  Age: 81 Year
  Sex: Male

DRUGS (1)
  1. CEREZYME [Suspect]
     Indication: GAUCHER'S DISEASE
     Dosage: 4200 U, Q2W, INTRAVENOUS
     Route: 042

REACTIONS (2)
  - PNEUMONIA [None]
  - BRONCHITIS VIRAL [None]
